FAERS Safety Report 6993474-3 (Version None)
Quarter: 2010Q3

REPORT INFORMATION
  Report Type: 
  Country: None (occurrence: None)
  Receive Date: 20100917
  Receipt Date: 20100623
  Transmission Date: 20110219
  Serious: No
  Sender: FDA-Public Use
  Company Number: US-ASTRAZENECA-2010SE29391

PATIENT
  Age: 15158 Day
  Sex: Female
  Weight: 53.1 kg

DRUGS (8)
  1. SEROQUEL XR [Suspect]
     Indication: POST-TRAUMATIC STRESS DISORDER
     Route: 048
  2. SEROQUEL XR [Suspect]
     Route: 048
     Dates: start: 20100608
  3. TRAZODONE HCL [Concomitant]
     Indication: DEPRESSION
     Route: 048
  4. ASCORBIC ACID [Concomitant]
     Dosage: 2000 UNITS DAILY
     Route: 048
  5. ZINC [Concomitant]
     Dosage: 1000 UNITS DAILY
     Route: 048
  6. PAXIL [Concomitant]
     Indication: POST-TRAUMATIC STRESS DISORDER
     Route: 048
  7. HYDROCODONE [Concomitant]
     Indication: PAIN
     Dosage: 10/325 DAILY
     Route: 048
  8. KLONOPIN [Concomitant]
     Route: 048

REACTIONS (5)
  - DRUG DOSE OMISSION [None]
  - INCORRECT DRUG DOSAGE FORM ADMINISTERED [None]
  - INCREASED APPETITE [None]
  - SOMNOLENCE [None]
  - THERAPEUTIC RESPONSE UNEXPECTED [None]
